FAERS Safety Report 4607558-8 (Version None)
Quarter: 2005Q1

REPORT INFORMATION
  Report Type: 
  Country: None (occurrence: None)
  Receive Date: 20050309
  Receipt Date: 20050224
  Transmission Date: 20050727
  Serious: No
  Sender: FDA-Public Use
  Company Number: 2005AP01351

PATIENT
  Age: 74 Year
  Sex: Female

DRUGS (1)
  1. FASLODEX [Suspect]
     Indication: METASTASES TO BONE
     Dosage: 1 SYRINGE
     Dates: start: 20050120, end: 20050120

REACTIONS (6)
  - BALANCE DISORDER [None]
  - DIZZINESS [None]
  - HEADACHE [None]
  - PAIN [None]
  - PELVIC PAIN [None]
  - RADICULAR PAIN [None]
